FAERS Safety Report 11832271 (Version 1)
Quarter: 2015Q4

REPORT INFORMATION
  Report Type: Spontaneous
  Country: US (occurrence: US)
  Receive Date: 20151214
  Receipt Date: 20151214
  Transmission Date: 20160305
  Serious: Yes (Life-Threatening)
  Sender: FDA-Public Use
  Company Number: US-APOTEX-2015AP006579

PATIENT
  Age: 57 Year
  Sex: Male
  Weight: 182.8 kg

DRUGS (1)
  1. FENTANYL TRANSDERMAL SYSTEM [Suspect]
     Active Substance: FENTANYL
     Indication: PAIN
     Dosage: 25 ?G/HR, EVERY 72HRS
     Route: 061
     Dates: start: 20150115, end: 20150120

REACTIONS (1)
  - Sedation [Recovered/Resolved]
